FAERS Safety Report 24050698 (Version 2)
Quarter: 2024Q3

REPORT INFORMATION
  Report Type: Spontaneous
  Country: US (occurrence: US)
  Receive Date: 20240704
  Receipt Date: 20240826
  Transmission Date: 20241016
  Serious: Yes (Other)
  Sender: PFIZER
  Company Number: US-PFIZER INC-2021050131

PATIENT
  Age: 54 Year
  Sex: Female

DRUGS (4)
  1. PREMARIN [Suspect]
     Active Substance: ESTROGENS, CONJUGATED
     Dosage: 1 G, 1X/DAY ( 1 GM VAG NIGHTLY (BEDTIME)/ PLACE PEA SIZE AMT IN VAGINA QHS FOR 2 WKS)
     Route: 067
     Dates: start: 20201209
  2. PREMARIN [Suspect]
     Active Substance: ESTROGENS, CONJUGATED
     Dosage: UNK (THREE TIMES A WK X 2 WKS)
     Route: 067
  3. PREMARIN [Suspect]
     Active Substance: ESTROGENS, CONJUGATED
     Dosage: UNK, 2X/WEEK (TWICE WEEKLY FOR MAIN)
     Route: 067
  4. PREMARIN [Suspect]
     Active Substance: ESTROGENS, CONJUGATED
     Dosage: INSERT 1 GM VAGINALLY WITHOUT APPLICATOR 2 NIGHT WEEKLY AT BEDTIME AS DIRECTED
     Route: 067

REACTIONS (3)
  - Thrombosis [Unknown]
  - Off label use [Unknown]
  - Wrong technique in product usage process [Unknown]
